FAERS Safety Report 15839003 (Version 1)
Quarter: 2019Q1

REPORT INFORMATION
  Report Type: Report from Study
  Country: US (occurrence: US)
  Receive Date: 20190117
  Receipt Date: 20190117
  Transmission Date: 20190417
  Serious: Yes (Other)
  Sender: FDA-Public Use
  Company Number: PHEH2019US001627

PATIENT
  Sex: Male
  Weight: 96.16 kg

DRUGS (1)
  1. COSENTYX [Suspect]
     Active Substance: SECUKINUMAB
     Indication: PSORIATIC ARTHROPATHY
     Dosage: 300 MG, QMO
     Route: 058
     Dates: start: 20170615

REACTIONS (3)
  - Sinusitis [Unknown]
  - Cellulitis [Unknown]
  - Haemorrhage [Unknown]

NARRATIVE: CASE EVENT DATE: 2018
